FAERS Safety Report 7272666-2 (Version None)
Quarter: 2011Q1

REPORT INFORMATION
  Report Type: 
  Country: None (occurrence: None)
  Receive Date: 20110203
  Receipt Date: 20110129
  Transmission Date: 20110831
  Serious: Yes (Death, Other)
  Sender: FDA-Public Use
  Company Number: ZA-BRISTOL-MYERS SQUIBB COMPANY-15526130

PATIENT
  Sex: Female

DRUGS (1)
  1. WARFARIN SODIUM [Suspect]
     Route: 064

REACTIONS (3)
  - INTRA-UTERINE DEATH [None]
  - CEREBRAL VENTRICLE DILATATION [None]
  - NASAL DISORDER [None]
